FAERS Safety Report 13247440 (Version 2)
Quarter: 2017Q1

REPORT INFORMATION
  Report Type: Spontaneous
  Country: FR (occurrence: FR)
  Receive Date: 20170217
  Receipt Date: 20170301
  Transmission Date: 20170428
  Serious: Yes (Life-Threatening, Hospitalization, Other)
  Sender: FDA-Public Use
  Company Number: FR-PFIZER INC-2017069777

PATIENT
  Age: 76 Year
  Sex: Female
  Weight: 54 kg

DRUGS (12)
  1. IMETH [Suspect]
     Active Substance: METHOTREXATE SODIUM
     Dosage: 20 MG, WEEKLY, (ON TUESDAYS)
     Route: 048
     Dates: start: 20170117
  2. APRANAX [Concomitant]
     Active Substance: NAPROXEN
     Dosage: 750 MG, DAILY
     Route: 065
  3. GELTIM LP [Concomitant]
     Active Substance: TIMOLOL MALEATE
     Dosage: 1 GTT, DAILY (IN LEFT EYE, DROP(S))
     Route: 065
  4. IMETH [Suspect]
     Active Substance: METHOTREXATE SODIUM
     Indication: RHEUMATOID ARTHRITIS
     Dosage: UNK
     Route: 048
     Dates: start: 20170110
  5. CRESTOR [Concomitant]
     Active Substance: ROSUVASTATIN CALCIUM
     Dosage: 10 MG, DAILY
     Route: 065
  6. LEVOTHYROX [Concomitant]
     Active Substance: LEVOTHYROXINE
     Dosage: 75 UG, DAILY
     Route: 065
  7. HYDROCORTANCYL [Concomitant]
     Active Substance: PREDNISONE
     Dosage: 5 MG, UNK
     Route: 065
     Dates: start: 20170110, end: 20170110
  8. TRAMADOL. [Concomitant]
     Active Substance: TRAMADOL
     Dosage: 150 MG, DAILY
  9. CORTANCYL [Concomitant]
     Active Substance: PREDNISONE
     Dosage: 60 MG, UNK
     Route: 065
     Dates: start: 20170104
  10. MOPRAL [Concomitant]
     Active Substance: OMEPRAZOLE SODIUM
     Dosage: 20 MG, DAILY
     Route: 065
  11. SPECIAFOLDINE [Concomitant]
     Active Substance: FOLIC ACID
     Dosage: 4 DF, UNK, (ON FRIDAY EVENING)
     Route: 065
     Dates: start: 20170109
  12. DOLIPRANE [Concomitant]
     Active Substance: ACETAMINOPHEN
     Dosage: 1000 MG, 3X/DAY
     Route: 065

REACTIONS (12)
  - Bone marrow failure [Recovering/Resolving]
  - Hepatocellular injury [Recovered/Resolved]
  - Renal tubular necrosis [Unknown]
  - Abdominal pain upper [Unknown]
  - Renal failure [Recovering/Resolving]
  - Confusional state [Unknown]
  - Infectious colitis [Unknown]
  - Fungal infection [Unknown]
  - Central nervous system lesion [Unknown]
  - Inflammation [Unknown]
  - Overdose [Unknown]
  - Coma [Unknown]

NARRATIVE: CASE EVENT DATE: 2017
